FAERS Safety Report 6215168-4 (Version None)
Quarter: 2009Q2

REPORT INFORMATION
  Report Type: 
  Country: None (occurrence: None)
  Receive Date: 20090601
  Receipt Date: 20081031
  Transmission Date: 20091009
  Serious: Yes (Other)
  Sender: FDA-Public Use
  Company Number: 280874

PATIENT
  Age: 53 Year
  Sex: Female
  Weight: 61.2 kg

DRUGS (12)
  1. ACTIVELLA [Suspect]
     Indication: MENOPAUSAL SYMPTOMS
     Dosage: 1MG/0.5MG
     Dates: start: 20010321, end: 20011004
  2. ESTRACE [Suspect]
     Indication: MENOPAUSAL SYMPTOMS
     Dosage: 1 MG
     Dates: start: 19920812, end: 19981022
  3. PROVERA [Suspect]
     Indication: MENOPAUSAL SYMPTOMS
     Dosage: 5 MG
     Dates: start: 19920812, end: 19981022
  4. PREMPRO [Suspect]
     Indication: MENOPAUSAL SYMPTOMS
     Dosage: 0.625/2,5MG; 0.625/2.5MG
     Dates: start: 19981022, end: 20000208
  5. PREMPRO [Suspect]
     Indication: MENOPAUSAL SYMPTOMS
     Dosage: 0.625/2,5MG; 0.625/2.5MG
     Dates: start: 20000302, end: 20040321
  6. ORTHO-PREFEST(ESTRADIOL, NORGESTIMATE) [Suspect]
     Indication: MENOPAUSAL SYMPTOMS
     Dates: start: 20000203, end: 20000302
  7. ESTRADIOL [Suspect]
     Indication: MENOPAUSAL SYMPTOMS
     Dosage: 1 MG, ORAL
     Route: 048
     Dates: start: 19980119, end: 19981022
  8. ORTHO NOVUM 0.5/50 21 TAB [Concomitant]
  9. ACTIFED /00005601/ (PSUEDOEPHEDRINE HYDROCHLORIDE, TRIPOLIDINE HYDROCH [Concomitant]
  10. CLARINEX /01202601/ (LORATADINE, PSEUDOPHEDRINE SULFATE) [Concomitant]
  11. FLONASE [Concomitant]
  12. CARDIZEM [Concomitant]

REACTIONS (1)
  - BREAST CANCER [None]
